FAERS Safety Report 6207866-3 (Version None)
Quarter: 2009Q2

REPORT INFORMATION
  Report Type: 
  Country: None (occurrence: None)
  Receive Date: 20090527
  Receipt Date: 20090512
  Transmission Date: 20091009
  Serious: Yes (Hospitalization)
  Sender: FDA-Public Use
  Company Number: US-JNJFOC-20090503065

PATIENT
  Age: 73 Year
  Sex: Male
  Weight: 79.3 kg

DRUGS (12)
  1. DECITABINE (DECITABINE) LYOPHILIZED POWDER [Suspect]
     Indication: MYELODYSPLASTIC SYNDROME
     Dosage: 20 MG/M2, INTRAVENOUS; 20 MG/M2, INTRAVENOUS
     Route: 042
     Dates: start: 20090302, end: 20090306
  2. DECITABINE (DECITABINE) LYOPHILIZED POWDER [Suspect]
     Indication: MYELODYSPLASTIC SYNDROME
     Dosage: 20 MG/M2, INTRAVENOUS; 20 MG/M2, INTRAVENOUS
     Route: 042
     Dates: end: 20090324
  3. ASCORBIC ACID [Suspect]
     Indication: MYELODYSPLASTIC SYNDROME
     Dosage: 1000 MG, 5 IN 1 WEEK, INTRAVENOUS
     Route: 042
     Dates: start: 20090302, end: 20090324
  4. TRISENOX [Suspect]
     Indication: MYELODYSPLASTIC SYNDROME
     Dosage: 0.1 MG/KG, 5 IN 1 WEEK, INTRAVENOUS
     Route: 042
     Dates: start: 20090302, end: 20090324
  5. LISINOPRIL [Concomitant]
  6. LYRICA [Concomitant]
  7. METOPROLOL (METOPROLOL) [Concomitant]
  8. ZETIA [Concomitant]
  9. FLOMAX [Concomitant]
  10. ALLOPURINOL [Concomitant]
  11. HYDREA [Concomitant]
  12. PROTONIX [Concomitant]

REACTIONS (8)
  - ABDOMINAL DISTENSION [None]
  - ABDOMINAL PAIN [None]
  - ANURIA [None]
  - BLOOD CREATINE INCREASED [None]
  - BLOOD UREA INCREASED [None]
  - CARDIAC TAMPONADE [None]
  - HYPOTENSION [None]
  - PERICARDIAL EFFUSION [None]
